FAERS Safety Report 7603009-X (Version None)
Quarter: 2011Q3

REPORT INFORMATION
  Report Type: 
  Country: None (occurrence: None)
  Receive Date: 20110701
  Receipt Date: 20110620
  Transmission Date: 20111222
  Serious: Yes (Other)
  Sender: FDA-Public Use
  Company Number: 2011MA008087

PATIENT
  Age: 56 Year
  Sex: Female

DRUGS (3)
  1. EPIRUBICIN HYDROCHLORIDE [Suspect]
     Indication: BREAST CANCER
     Dosage: IV
     Route: 042
     Dates: start: 20080101
  2. CYCLOPHOSPHAMIDE [Suspect]
     Indication: BREAST CANCER
     Dates: start: 20080101
  3. TAXOTERE [Suspect]
     Indication: BREAST CANCER
     Dosage: IV
     Route: 042
     Dates: start: 20080101

REACTIONS (3)
  - NAIL DISORDER [None]
  - ASTHENIA [None]
  - ALOPECIA [None]
